FAERS Safety Report 6182654-5 (Version None)
Quarter: 2009Q2

REPORT INFORMATION
  Report Type: 
  Country: None (occurrence: None)
  Receive Date: 20090507
  Receipt Date: 20090427
  Transmission Date: 20091009
  Serious: Yes (Death, Hospitalization)
  Sender: FDA-Public Use
  Company Number: A0751214A

PATIENT
  Age: 71 Year
  Sex: Male
  Weight: 168.2 kg

DRUGS (10)
  1. AVANDIA [Suspect]
     Dosage: 8MG PER DAY
     Route: 048
     Dates: start: 20001103, end: 20060901
  2. HUMULIN R [Concomitant]
     Dates: start: 19970101, end: 20050701
  3. GLUCOPHAGE [Concomitant]
     Dates: start: 20000501, end: 20050301
  4. FLUOXETINE HCL [Concomitant]
  5. OMEPRAZOLE [Concomitant]
  6. LIPITOR [Concomitant]
  7. TORSEMIDE [Concomitant]
  8. HYDROCHLOROTHIAZIDE [Concomitant]
  9. ZYRTEC [Concomitant]
  10. ASPIRIN [Concomitant]

REACTIONS (3)
  - ANOXIC ENCEPHALOPATHY [None]
  - MYOCARDIAL INFARCTION [None]
  - VENTRICULAR ARRHYTHMIA [None]
